FAERS Safety Report 6509561-X (Version None)
Quarter: 2009Q4

REPORT INFORMATION
  Report Type: 
  Country: None (occurrence: None)
  Receive Date: 20091222
  Receipt Date: 20091214
  Transmission Date: 20100525
  Serious: Yes (Other)
  Sender: FDA-Public Use
  Company Number: US-ROCHE-669508

PATIENT
  Sex: Female
  Weight: 61.4 kg

DRUGS (2)
  1. TAMIFLU [Suspect]
     Indication: INFLUENZA
     Route: 048
     Dates: start: 20091112, end: 20091117
  2. IBUPROFEN [Concomitant]

REACTIONS (11)
  - ANXIETY [None]
  - BACK PAIN [None]
  - FEELING ABNORMAL [None]
  - HYPERACUSIS [None]
  - HYPERHIDROSIS [None]
  - NIGHTMARE [None]
  - PARANOIA [None]
  - PHOTOPSIA [None]
  - RASH ERYTHEMATOUS [None]
  - TACHYPHRENIA [None]
  - VERTIGO [None]
